FAERS Safety Report 5348299-1 (Version None)
Quarter: 2007Q2

REPORT INFORMATION
  Report Type: 
  Country: None (occurrence: None)
  Receive Date: 20070605
  Receipt Date: 20070525
  Transmission Date: 20071010
  Serious: Yes (Life-Threatening, Hospitalization, Other)
  Sender: FDA-Public Use
  Company Number: 07H-167-0312669-00

PATIENT
  Age: 29 Year
  Sex: Female

DRUGS (5)
  1. FENTANYL CITRATE [Suspect]
     Dosage: 100 MCG, INTRAVENOUS BOLUS
     Route: 040
     Dates: start: 20070326, end: 20070326
  2. ONDANSETRON [Suspect]
     Dosage: 4 MG, INTRAVENOUS BOLUS
     Route: 040
     Dates: start: 20070326, end: 20070326
  3. PROPOFOL [Suspect]
     Dosage: 200 MG, INTRAVENOUS BOLUS
     Route: 040
     Dates: start: 20070326, end: 20070326
  4. ATRACURIUM BESYLATE [Suspect]
     Dosage: 30 MG, INTRAVENOUS BOLUS
     Route: 040
     Dates: start: 20070326, end: 20070326
  5. LEVOTHYROXINE SODIUM [Concomitant]

REACTIONS (1)
  - ANAPHYLACTIC REACTION [None]
